FAERS Safety Report 8840221 (Version 5)
Quarter: 2013Q3

REPORT INFORMATION
  Report Type: Report from Study
  Country: JP (occurrence: JP)
  Receive Date: 20121015
  Receipt Date: 20130912
  Transmission Date: 20140515
  Serious: Yes (Hospitalization, Other)
  Sender: FDA-Public Use
  Company Number: JP-VERTEX PHARMACEUTICAL INC.-AE-2012-009364

PATIENT
  Age: 51 Year
  Sex: Male

DRUGS (12)
  1. VX-950 (TELAPREVIR) [Suspect]
     Indication: CHRONIC HEPATITIS C
     Dosage: 2250 MG, QD
     Route: 048
     Dates: start: 20120426, end: 20120508
  2. RIBAVIRIN [Suspect]
     Indication: CHRONIC HEPATITIS C
     Dosage: 800 MG, QD
     Route: 048
     Dates: start: 20120426, end: 20120516
  3. RIBAVIRIN [Suspect]
     Dosage: 600 MG, QD
     Route: 048
     Dates: start: 20120517, end: 20120620
  4. RIBAVIRIN [Suspect]
     Dosage: 800 MG, QD
     Route: 048
     Dates: start: 20120621, end: 20120704
  5. RIBAVIRIN [Suspect]
     Dosage: 600 MG, QD
     Route: 048
     Dates: start: 20120705, end: 20121011
  6. PEGINTERFERON ALFA-2B [Suspect]
     Indication: CHRONIC HEPATITIS C
     Dosage: 1.5 ?G/KG, QW
     Route: 058
     Dates: start: 20120426, end: 20121011
  7. ALLEGRA [Concomitant]
     Dosage: 2 DF, QD
     Route: 048
     Dates: start: 20120502
  8. DERMOVATE [Concomitant]
     Dosage: UNK, PRN
     Route: 061
     Dates: start: 20120508, end: 20120517
  9. LENDORMIN [Concomitant]
     Dosage: 1 DF, QD
     Route: 048
     Dates: start: 20120509
  10. LENDORMIN [Concomitant]
     Dosage: 1 DF, QD
     Route: 048
  11. ANTEBATE [Concomitant]
     Dosage: UNK, PRN
     Route: 061
     Dates: start: 20120502, end: 20120507
  12. GASPORT D [Concomitant]
     Dosage: 2 DF, QD
     Route: 048
     Dates: start: 20120426

REACTIONS (2)
  - White blood cell count decreased [Not Recovered/Not Resolved]
  - Rash [Recovered/Resolved]
